FAERS Safety Report 4599800-7 (Version None)
Quarter: 2005Q1

REPORT INFORMATION
  Report Type: 
  Country: None (occurrence: None)
  Receive Date: 20050304
  Receipt Date: 20050304
  Transmission Date: 20050727
  Serious: Yes (Life-Threatening)
  Sender: FDA-Public Use
  Company Number: None

PATIENT
  Age: 60 Year
  Sex: Female
  Weight: 72.5755 kg

DRUGS (2)
  1. BACTRIM [Suspect]
     Indication: INFECTION
     Dates: start: 20050215, end: 20050218
  2. DILANTIN [Suspect]
     Indication: CONVULSION PROPHYLAXIS
     Dates: start: 20050119, end: 20050218

REACTIONS (1)
  - TOXIC EPIDERMAL NECROLYSIS [None]
